FAERS Safety Report 7216386-9 (Version None)
Quarter: 2011Q1

REPORT INFORMATION
  Report Type: 
  Country: None (occurrence: None)
  Receive Date: 20110107
  Receipt Date: 20110103
  Transmission Date: 20110831
  Serious: Yes (Hospitalization)
  Sender: FDA-Public Use
  Company Number: FR-ABBOTT-11P-056-0694770-00

PATIENT
  Sex: Female

DRUGS (7)
  1. DEPAKOTE [Suspect]
     Indication: INTENTIONAL OVERDOSE
     Route: 048
     Dates: start: 20091210, end: 20091210
  2. MEPRONIZINE [Suspect]
     Indication: INTENTIONAL OVERDOSE
     Dosage: 400 MG COATED
     Route: 048
     Dates: start: 20091210, end: 20091210
  3. IMOVANE [Suspect]
     Indication: INTENTIONAL OVERDOSE
     Route: 048
     Dates: start: 20091210, end: 20091210
  4. ZELITREX [Suspect]
     Indication: INTENTIONAL OVERDOSE
     Route: 048
     Dates: start: 20091210, end: 20091210
  5. TIAPRIDAL [Suspect]
     Indication: INTENTIONAL OVERDOSE
     Route: 048
     Dates: start: 20101210, end: 20101210
  6. NEXIUM [Suspect]
     Indication: INTENTIONAL OVERDOSE
     Route: 048
     Dates: start: 20091210, end: 20091210
  7. SEROPLEX FILM-COATED TABLETS [Suspect]
     Indication: INTENTIONAL OVERDOSE
     Route: 048
     Dates: start: 20091210, end: 20091210

REACTIONS (8)
  - HYPOTENSION [None]
  - INTENTIONAL OVERDOSE [None]
  - COMA [None]
  - RHABDOMYOLYSIS [None]
  - HYPOTHERMIA [None]
  - TOXICITY TO VARIOUS AGENTS [None]
  - BRADYPNOEA [None]
  - MYDRIASIS [None]
